FAERS Safety Report 18670805 (Version 1)
Quarter: 2020Q4

REPORT INFORMATION
  Report Type: Report from Study
  Country: CR (occurrence: CR)
  Receive Date: 20201228
  Receipt Date: 20201228
  Transmission Date: 20210114
  Serious: Yes (Other)
  Sender: FDA-Public Use
  Company Number: NVSC2020CR338886

PATIENT
  Sex: Female
  Weight: 145 kg

DRUGS (3)
  1. IRBESARTAN. [Suspect]
     Active Substance: IRBESARTAN
     Indication: HYPERTENSION
     Dosage: 1 DF, QD
     Route: 065
     Dates: start: 2017
  2. LEVOTHYROXINE. [Concomitant]
     Active Substance: LEVOTHYROXINE
     Indication: HYPOTHYROIDISM
     Dosage: 2 DF, QD
     Route: 065
  3. AMLODINE [Concomitant]
     Active Substance: AMLODIPINE BESYLATE
     Indication: HYPERTENSION
     Dosage: 1 DF, QD
     Route: 065
     Dates: start: 2017

REACTIONS (9)
  - Multiple sclerosis [Unknown]
  - Gait disturbance [Unknown]
  - Overweight [Unknown]
  - Feeling cold [Unknown]
  - Fall [Unknown]
  - Fatigue [Unknown]
  - Central nervous system lesion [Unknown]
  - Feeling hot [Unknown]
  - Dizziness [Unknown]
